FAERS Safety Report 20906121 (Version 1)
Quarter: 2022Q2

REPORT INFORMATION
  Report Type: Spontaneous
  Country: US (occurrence: US)
  Receive Date: 20220602
  Receipt Date: 20220602
  Transmission Date: 20220721
  Serious: No
  Sender: FDA-Public Use
  Company Number: US-COLLEGIUM PHARMACEUTICAL, INC.-2021CGM00489

PATIENT
  Age: 75 Year
  Sex: Female
  Weight: 49.887 kg

DRUGS (4)
  1. XTAMPZA ER [Suspect]
     Active Substance: OXYCODONE
     Indication: Pain in extremity
     Dosage: UNK
     Dates: start: 20210422
  2. OXYCONTIN [Concomitant]
     Active Substance: OXYCODONE HYDROCHLORIDE
     Dosage: 1 OR 2 TABLETS IN BETTWEN XTAMPZA
  3. IBRANCE [Concomitant]
     Active Substance: PALBOCICLIB
     Dosage: 75 MG, 1X/DAY (ONE WEEK ON, ONE WEEK OFF)
     Route: 048
  4. MARINOL [Concomitant]
     Active Substance: DRONABINOL
     Dosage: UNK, AS NEEDED

REACTIONS (1)
  - Therapeutic product effect incomplete [Not Recovered/Not Resolved]

NARRATIVE: CASE EVENT DATE: 20210422
